FAERS Safety Report 14244838 (Version 1)
Quarter: 2017Q4

REPORT INFORMATION
  Report Type: Spontaneous
  Country: US (occurrence: US)
  Receive Date: 20171201
  Receipt Date: 20171201
  Transmission Date: 20180321
  Serious: Yes (Other)
  Sender: FDA-Public Use
  Company Number: US-PRESTIGE BRANDS -2036485

PATIENT
  Sex: Female

DRUGS (1)
  1. BC (ASPIRIN\CAFFEINE) [Suspect]
     Active Substance: ASPIRIN\CAFFEINE
     Route: 048

REACTIONS (5)
  - Intentional product misuse [Unknown]
  - Ulcer [Unknown]
  - Dependence [Not Recovered/Not Resolved]
  - Hyperhidrosis [Unknown]
  - Oesophageal operation [Unknown]
